FAERS Safety Report 23983713 (Version 3)
Quarter: 2024Q3

REPORT INFORMATION
  Report Type: Report from Study
  Country: US (occurrence: US)
  Receive Date: 20240618
  Receipt Date: 20240731
  Transmission Date: 20241017
  Serious: Yes (Hospitalization, Other)
  Sender: ABBVIE
  Company Number: US-ABBVIE-5802777

PATIENT
  Age: 40 Year
  Sex: Male
  Weight: 65.77 kg

DRUGS (6)
  1. SKYRIZI [Suspect]
     Active Substance: RISANKIZUMAB-RZAA
     Indication: Psoriasis
     Route: 058
  2. SKYRIZI [Suspect]
     Active Substance: RISANKIZUMAB-RZAA
     Dosage: DOSAGE: 150 MG/ML WEEK 0
     Route: 058
     Dates: start: 20231208, end: 20231208
  3. SKYRIZI [Suspect]
     Active Substance: RISANKIZUMAB-RZAA
     Dosage: DOSAGE: 150 MG/ML WEEK 4?THEN EVERY 12 WEEKS THEREAFTER?FORM STRENGTH:150MG/ML
     Route: 058
     Dates: start: 20240105, end: 20240105
  4. SKYRIZI [Suspect]
     Active Substance: RISANKIZUMAB-RZAA
     Dosage: DOSAGE: 150 MG/ML THERAPY START DATE 2024?FORM STRENGTH:150MG/ML
     Route: 058
  5. OXYCODONE [Concomitant]
     Active Substance: OXYCODONE
     Indication: Colonic abscess
  6. TORADOL [Concomitant]
     Active Substance: KETOROLAC TROMETHAMINE
     Indication: Pain

REACTIONS (5)
  - Abscess intestinal [Recovered/Resolved]
  - Abscess intestinal [Recovered/Resolved]
  - Pain [Recovered/Resolved]
  - Unevaluable event [Unknown]
  - Abscess [Unknown]

NARRATIVE: CASE EVENT DATE: 20240401
